FAERS Safety Report 25190799 (Version 2)
Quarter: 2025Q3

REPORT INFORMATION
  Report Type: Report from Study
  Country: US (occurrence: US)
  Receive Date: 20250411
  Receipt Date: 20250802
  Transmission Date: 20251020
  Serious: Yes (Other)
  Sender: ALEXION PHARMACEUTICALS
  Company Number: US-AstraZeneca-CH-00846464A

PATIENT
  Sex: Male

DRUGS (31)
  1. SODIUM ZIRCONIUM CYCLOSILICATE [Suspect]
     Active Substance: SODIUM ZIRCONIUM CYCLOSILICATE
     Route: 065
  2. ACETAMINOPHEN [Concomitant]
     Active Substance: ACETAMINOPHEN
  3. ANTACID [Concomitant]
     Active Substance: ALUMINUM HYDROXIDE\CALCIUM CARBONATE\DIMETHICONE\MAGNESIUM HYDROXIDE
  4. CINACALCET [Concomitant]
     Active Substance: CINACALCET
  5. TICLOPIDINE HYDROCHLORIDE [Concomitant]
     Active Substance: TICLOPIDINE HYDROCHLORIDE
  6. DIPHENHYDRAMINE [Concomitant]
     Active Substance: DIPHENHYDRAMINE
  7. DOXERCALCIFEROL [Concomitant]
     Active Substance: DOXERCALCIFEROL
  8. DEXTROSE [Concomitant]
     Active Substance: DEXTROSE MONOHYDRATE
  9. LOPERAMIDE [Concomitant]
     Active Substance: LOPERAMIDE
  10. MIRCERA [Concomitant]
     Active Substance: METHOXY POLYETHYLENE GLYCOL-EPOETIN BETA
  11. ONDANSETRON [Concomitant]
     Active Substance: ONDANSETRON
  12. OXYGEN [Concomitant]
     Active Substance: OXYGEN
  13. TUBERSOL [Concomitant]
     Active Substance: TUBERCULIN PURIFIED PROTEIN DERIVATIVE
  14. PREVNAR 20 [Concomitant]
     Active Substance: PNEUMOCOCCAL 20-VALENT CONJUGATE VACCINE
  15. AMLODIPINE [Concomitant]
     Active Substance: AMLODIPINE BESYLATE
  16. BUMEX [Concomitant]
     Active Substance: BUMETANIDE
  17. FAMOTIDINE [Concomitant]
     Active Substance: FAMOTIDINE
  18. LOSARTAN POTASSIUM [Concomitant]
     Active Substance: LOSARTAN POTASSIUM
  19. METOPROLOL [Concomitant]
     Active Substance: METOPROLOL
  20. Ach pravastatin [Concomitant]
  21. ASCORBIC ACID\BIOTIN\CALCIUM PANTOTHENATE\CYANOCOBALAMIN\FOLIC ACID\NI [Concomitant]
     Active Substance: ASCORBIC ACID\BIOTIN\CALCIUM PANTOTHENATE\CYANOCOBALAMIN\FOLIC ACID\NIACINAMIDE\PYRIDOXINE HYDROCHLO
  22. SEVELAMER CARBONATE [Concomitant]
     Active Substance: SEVELAMER CARBONATE
  23. VELPHORO [Concomitant]
     Active Substance: SUCROFERRIC OXYHYDROXIDE
  24. VITAMIN C [Concomitant]
     Active Substance: ASCORBIC ACID
  25. XIFAXAN [Concomitant]
     Active Substance: RIFAXIMIN
  26. ZINC [Concomitant]
     Active Substance: ZINC
  27. INFLUENZA VIRUS VACCINE [Concomitant]
     Active Substance: INFLUENZA VIRUS VACCINE
  28. FLUCELVAX NOS [Concomitant]
     Active Substance: INFLUENZA A VIRUS A/BRISBANE/10/2010 (H1N1) ANTIGEN (MDCK CELL DERIVED, PROPIOLACTONE INACTIVATED)\I
  29. PNEUMOCOCCAL VACCINE NOS [Concomitant]
     Active Substance: PNEUMOCOCCAL VACCINE
  30. PREVNAR [Concomitant]
     Active Substance: PNEUMOCOCCAL 7-VALENT CONJUGATE VACCINE (DIPHTHERIA CRM197 PROTEIN)
  31. COVID-19 vaccine [Concomitant]

REACTIONS (1)
  - Blindness [Unknown]
